FAERS Safety Report 20839908 (Version 2)
Quarter: 2022Q3

REPORT INFORMATION
  Report Type: Spontaneous
  Country: CZ (occurrence: CZ)
  Receive Date: 20220517
  Receipt Date: 20220810
  Transmission Date: 20221027
  Serious: Yes (Other)
  Sender: FDA-Public Use
  Company Number: None

PATIENT
  Age: 60 Year
  Sex: Female

DRUGS (1)
  1. PRALUENT [Suspect]
     Active Substance: ALIROCUMAB
     Indication: Hypercholesterolaemia
     Dosage: 75 MG
     Route: 058
     Dates: start: 20220208, end: 20220425

REACTIONS (1)
  - Blood creatine phosphokinase increased [Unknown]

NARRATIVE: CASE EVENT DATE: 20220425
